FAERS Safety Report 4868544-6 (Version None)
Quarter: 2005Q4

REPORT INFORMATION
  Report Type: 
  Country: None (occurrence: None)
  Receive Date: 20051223
  Receipt Date: 20051205
  Transmission Date: 20060501
  Serious: Yes (Other)
  Sender: FDA-Public Use
  Company Number: US200512001023

PATIENT
  Sex: Female

DRUGS (4)
  1. HUMALOG [Suspect]
  2. HUMULIN N [Suspect]
  3. HUMULIN R [Suspect]
  4. HUMALOG PEN (HUMALOG PEN) PEN, DISPOSABLE [Concomitant]

REACTIONS (5)
  - HEPATIC FAILURE [None]
  - MALAISE [None]
  - PHARMACEUTICAL PRODUCT COMPLAINT [None]
  - THIRST [None]
  - WRONG TECHNIQUE IN DRUG USAGE PROCESS [None]
